FAERS Safety Report 17956249 (Version 1)
Quarter: 2020Q2

REPORT INFORMATION
  Report Type: Spontaneous
  Country: US (occurrence: US)
  Receive Date: 20200629
  Receipt Date: 20200629
  Transmission Date: 20200714
  Serious: Yes (Hospitalization, Other)
  Sender: FDA-Public Use
  Company Number: US-BAYER-2020-119479

PATIENT
  Age: 48 Year
  Sex: Female
  Weight: 63.56 kg

DRUGS (68)
  1. XARELTO [Suspect]
     Active Substance: RIVAROXABAN
     Indication: THROMBOSIS
     Dosage: 15 MG, BID
     Route: 048
  2. XARELTO [Suspect]
     Active Substance: RIVAROXABAN
     Indication: THROMBOSIS
     Dosage: 20 MG, QD
     Route: 048
  3. ASPIRIN (CARDIO) [Suspect]
     Active Substance: ASPIRIN
     Indication: PRODUCT USED FOR UNKNOWN INDICATION
  4. PRILOSEC [Concomitant]
     Active Substance: OMEPRAZOLE MAGNESIUM
  5. FERROUS SULFATE. [Concomitant]
     Active Substance: FERROUS SULFATE
     Dates: start: 20151105
  6. IPRATROPIUM [Concomitant]
     Active Substance: IPRATROPIUM
  7. INSULIN LISPRO [Concomitant]
     Active Substance: INSULIN LISPRO
     Dates: start: 20191227
  8. RANITIDINE. [Concomitant]
     Active Substance: RANITIDINE
     Dates: start: 20191227
  9. REVATIO [Concomitant]
     Active Substance: SILDENAFIL CITRATE
     Dosage: UNK
  10. OXYGEN. [Concomitant]
     Active Substance: OXYGEN
     Dates: start: 20131014
  11. CHOLECALCIFEROL [Concomitant]
     Active Substance: CHOLECALCIFEROL
     Dates: start: 20140219
  12. SPIRONOLACTONE. [Concomitant]
     Active Substance: SPIRONOLACTONE
     Dates: start: 20100222
  13. ALBUTEROL [SALBUTAMOL] [Concomitant]
     Active Substance: ALBUTEROL
     Dates: start: 20190716
  14. AZITHROMYCIN ANHYDROUS. [Concomitant]
     Active Substance: AZITHROMYCIN ANHYDROUS
     Dates: start: 20191227
  15. CEFEPIME [Concomitant]
     Active Substance: CEFEPIME HYDROCHLORIDE
     Dates: start: 20191227
  16. ONDASETRON [ONDANSETRON HYDROCHLORIDE] [Concomitant]
     Dates: start: 20191227
  17. SODIUM CHLORIDE. [Concomitant]
     Active Substance: SODIUM CHLORIDE
     Dates: start: 20191227
  18. LASIX [Concomitant]
     Active Substance: FUROSEMIDE
     Indication: OEDEMA PERIPHERAL
     Dosage: 60 MG, BID
     Route: 048
  19. DABIGATRAN [Concomitant]
     Active Substance: DABIGATRAN
     Dates: start: 20111129
  20. OXYCODONE [Concomitant]
     Active Substance: OXYCODONE
  21. ALDACTONE [Concomitant]
     Active Substance: SPIRONOLACTONE
  22. ACTIGALL [Concomitant]
     Active Substance: URSODIOL
  23. ALBUMIN [Concomitant]
     Active Substance: ALBUMIN HUMAN
     Dates: start: 20150906
  24. IOHEXOL [Concomitant]
     Active Substance: IOHEXOL
     Dates: start: 20160417
  25. FERROUS SULPHATE [FERROUS SULFATE] [Concomitant]
     Active Substance: FERROUS SULFATE
  26. ACETAMINOPHEN. [Concomitant]
     Active Substance: ACETAMINOPHEN
     Dates: start: 20191227
  27. CALAMINE LOTION PHENOLATED [Concomitant]
     Dates: start: 20191227
  28. METOLAZONE. [Concomitant]
     Active Substance: METOLAZONE
     Indication: OEDEMA PERIPHERAL
     Dosage: 2.5 MG, QD
     Route: 048
  29. FENTANYL. [Concomitant]
     Active Substance: FENTANYL
     Dates: start: 20150822
  30. OMEPRAZOLE. [Concomitant]
     Active Substance: OMEPRAZOLE
  31. SERTRALINE [Concomitant]
     Active Substance: SERTRALINE HYDROCHLORIDE
     Dates: start: 20190716
  32. CHLORHEXIDINE [Concomitant]
     Active Substance: CHLORHEXIDINE
     Dates: start: 20191227
  33. DEXTROSE 5% [Concomitant]
     Active Substance: DEXTROSE
     Dates: start: 20191227
  34. HYDROMORPHONE [Concomitant]
     Active Substance: HYDROMORPHONE
     Dates: start: 20191227
  35. METRONIDAZOLE. [Concomitant]
     Active Substance: METRONIDAZOLE
     Dates: start: 20191227
  36. PERFLUTREN [Concomitant]
     Active Substance: PERFLUTREN
     Dates: start: 20191227
  37. PROCHLORPERAZINE. [Concomitant]
     Active Substance: PROCHLORPERAZINE
     Dates: start: 20191227
  38. XARELTO [Suspect]
     Active Substance: RIVAROXABAN
     Indication: THROMBOSIS
     Dosage: 15 MG, BID
  39. ENOXAPARIN [Concomitant]
     Active Substance: ENOXAPARIN
     Dates: start: 20160417
  40. LACTULOSE. [Concomitant]
     Active Substance: LACTULOSE
  41. CALCIUM CARBONATE. [Concomitant]
     Active Substance: CALCIUM CARBONATE
     Dates: start: 20190716
  42. NICOTINE. [Concomitant]
     Active Substance: NICOTINE
     Dates: start: 20190716
  43. LEVOFLOXACIN. [Concomitant]
     Active Substance: LEVOFLOXACIN
  44. LEVOTHYROXINE. [Concomitant]
     Active Substance: LEVOTHYROXINE
  45. FAMOTIDINE. [Concomitant]
     Active Substance: FAMOTIDINE
     Dates: start: 20191227
  46. PHOSPHATE SANDOZ [Concomitant]
     Active Substance: SODIUM PHOSPHATE, MONOBASIC, ANHYDROUS
     Dates: start: 20191227
  47. XARELTO [Suspect]
     Active Substance: RIVAROXABAN
     Indication: DEEP VEIN THROMBOSIS
     Dosage: 20 MG, QD
     Route: 048
  48. OPSUMIT [Suspect]
     Active Substance: MACITENTAN
     Indication: PRODUCT USED FOR UNKNOWN INDICATION
     Dosage: UNK
     Dates: start: 20200121
  49. ZANTAC [Concomitant]
     Active Substance: RANITIDINE HYDROCHLORIDE
  50. XIFAXAN [Concomitant]
     Active Substance: RIFAXIMIN
  51. POTASSIUM CHLORIDE. [Concomitant]
     Active Substance: POTASSIUM CHLORIDE
     Dates: start: 20160220
  52. SENNA LAXATIVE [Concomitant]
     Active Substance: SENNOSIDES
     Dates: start: 20190716
  53. CARVEDILOL. [Concomitant]
     Active Substance: CARVEDILOL
     Dates: start: 20191227
  54. IODIXANOL. [Concomitant]
     Active Substance: IODIXANOL
     Dates: start: 20191227
  55. ALBUTEROL SULFATE AND IPRATROPIUM BROMIDE [Concomitant]
     Active Substance: ALBUTEROL SULFATE\IPRATROPIUM BROMIDE
     Dates: start: 20191227
  56. PROPOFOL. [Concomitant]
     Active Substance: PROPOFOL
     Dates: start: 20191227
  57. THIAMINE. [Concomitant]
     Active Substance: THIAMINE
     Dates: start: 20191227
  58. LASIX [Concomitant]
     Active Substance: FUROSEMIDE
     Indication: OEDEMA PERIPHERAL
     Dosage: 40 MG, BID
     Route: 048
  59. CEPHULAC [Concomitant]
     Active Substance: LACTULOSE
  60. FOLIC ACID. [Concomitant]
     Active Substance: FOLIC ACID
     Dates: start: 20150307
  61. DEXTROSE. [Concomitant]
     Active Substance: DEXTROSE
     Dates: start: 20150906
  62. METHADONE [Concomitant]
     Active Substance: METHADONE HYDROCHLORIDE
     Dates: start: 20080225
  63. OPSUMIT [Suspect]
     Active Substance: MACITENTAN
     Indication: PRODUCT USED FOR UNKNOWN INDICATION
     Dosage: 10 MG, UNK
     Route: 048
     Dates: start: 20140801
  64. RIFAXIMIN. [Concomitant]
     Active Substance: RIFAXIMIN
  65. MAGNESIUM SULFATE. [Concomitant]
     Active Substance: MAGNESIUM SULFATE
     Dates: start: 20191227
  66. NOREPINEPHRINE. [Concomitant]
     Active Substance: NOREPINEPHRINE
     Dates: start: 20191227
  67. OXYMETAZOLINE [Concomitant]
     Active Substance: OXYMETAZOLINE
     Dates: start: 20191227
  68. LASIX [Concomitant]
     Active Substance: FUROSEMIDE
     Indication: OEDEMA PERIPHERAL
     Dosage: 80 MG, BID
     Route: 048
     Dates: start: 20150131

REACTIONS (36)
  - Portal hypertensive gastropathy [Unknown]
  - Pneumonia [Unknown]
  - Varices oesophageal [Unknown]
  - Gastric ulcer [Unknown]
  - Surgery [Unknown]
  - Gastrointestinal mucosal disorder [Unknown]
  - Pneumonia escherichia [Unknown]
  - Cellulitis [Unknown]
  - Adverse event [Unknown]
  - Back pain [Recovered/Resolved]
  - Ammonia increased [Unknown]
  - Hypervolaemia [Recovered/Resolved]
  - Compression fracture [Unknown]
  - Peripheral venous disease [Unknown]
  - Gastric polyps [Unknown]
  - Dysphagia [Unknown]
  - Wound infection pseudomonas [Unknown]
  - Portal hypertension [Unknown]
  - Toxic encephalopathy [Recovered/Resolved]
  - Condition aggravated [Unknown]
  - Dermatitis [Unknown]
  - Gastrointestinal erosion [Unknown]
  - Respiratory distress [Unknown]
  - Pulmonary oedema [Unknown]
  - Right ventricular failure [None]
  - Septic shock [Unknown]
  - Internal haemorrhage [Unknown]
  - Hypothyroidism [Unknown]
  - Hepatic encephalopathy [Unknown]
  - Gastrointestinal haemorrhage [Recovered/Resolved with Sequelae]
  - Post thrombotic syndrome [Unknown]
  - Gastrooesophageal reflux disease [Unknown]
  - Abdominal pain [Recovered/Resolved]
  - Skin ulcer [Unknown]
  - Blood bilirubin increased [Unknown]
  - Blood lactate dehydrogenase increased [Unknown]

NARRATIVE: CASE EVENT DATE: 20150717
